FAERS Safety Report 5786672-8 (Version None)
Quarter: 2008Q2

REPORT INFORMATION
  Report Type: 
  Country: None (occurrence: None)
  Receive Date: 20080618
  Receipt Date: 20080616
  Transmission Date: 20081010
  Serious: Yes (Other)
  Sender: FDA-Public Use
  Company Number: E2090-00485-SPO-FR

PATIENT
  Age: 37 Year
  Sex: Male

DRUGS (2)
  1. ZONEGRAN [Suspect]
     Indication: EPILEPSY
     Dosage: ORAL; 150 MG, 1 IN1 D, ORAL
     Route: 048
     Dates: end: 20080101
  2. ZONEGRAN [Suspect]
     Indication: EPILEPSY
     Dosage: ORAL; 150 MG, 1 IN1 D, ORAL
     Route: 048
     Dates: start: 20080609

REACTIONS (3)
  - FATIGUE [None]
  - HEADACHE [None]
  - HYPERTHERMIA [None]
